FAERS Safety Report 13079065 (Version 2)
Quarter: 2017Q1

REPORT INFORMATION
  Report Type: Report from Study
  Country: BE (occurrence: BE)
  Receive Date: 20170102
  Receipt Date: 20170112
  Transmission Date: 20170428
  Serious: Yes (Death)
  Sender: FDA-Public Use
  Company Number: BE-BEH-2016076760

PATIENT
  Age: 54 Year
  Sex: Female
  Weight: 85 kg

DRUGS (6)
  1. HIZENTRA [Suspect]
     Active Substance: HUMAN IMMUNOGLOBULIN G
     Dosage: UNK
     Route: 058
     Dates: start: 20130128
  2. ORGAMETRIL [Concomitant]
     Active Substance: LYNESTRENOL
     Dosage: 5 MG, QD
     Route: 065
  3. METATOP                            /00571201/ [Concomitant]
     Dosage: 2 MG, QD
     Route: 065
  4. HIZENTRA [Suspect]
     Active Substance: HUMAN IMMUNOGLOBULIN G
     Dosage: UNK
     Route: 058
     Dates: start: 20130128
  5. PANTOMED                           /00178901/ [Concomitant]
     Dosage: 40 MG, QD
     Route: 065
  6. HIZENTRA [Suspect]
     Active Substance: HUMAN IMMUNOGLOBULIN G
     Indication: HYPOGAMMAGLOBULINAEMIA
     Dosage: 4 G, QW
     Route: 058

REACTIONS (1)
  - Death [Fatal]

NARRATIVE: CASE EVENT DATE: 201612
